FAERS Safety Report 5485462-3 (Version None)
Quarter: 2007Q4

REPORT INFORMATION
  Report Type: 
  Country: None (occurrence: None)
  Receive Date: 20071010
  Receipt Date: 20071010
  Transmission Date: 20080405
  Serious: Yes (Other)
  Sender: FDA-Public Use
  Company Number: None

PATIENT
  Sex: Female

DRUGS (1)
  1. CHANTIX [Suspect]
     Indication: SMOKING CESSATION THERAPY
     Dosage: 1 MGM BID PO
     Route: 048
     Dates: start: 20070507, end: 20070801

REACTIONS (3)
  - ARTHRALGIA [None]
  - DEPRESSION [None]
  - SUICIDAL IDEATION [None]
